FAERS Safety Report 7949508-2 (Version None)
Quarter: 2011Q4

REPORT INFORMATION
  Report Type: 
  Country: None (occurrence: None)
  Receive Date: 20111130
  Receipt Date: 20111121
  Transmission Date: 20120403
  Serious: Yes (Other)
  Sender: FDA-Public Use
  Company Number: US-BAYER-2011-006257

PATIENT
  Age: 49 Year
  Sex: Female
  Weight: 96 kg

DRUGS (7)
  1. FISH OIL [Concomitant]
  2. ATENOLOL [Concomitant]
     Dosage: 25 MG, DAILY
  3. CELEXA [Concomitant]
     Dosage: 20 MG, DAILY
  4. YASMIN [Suspect]
     Indication: PREMENSTRUAL SYNDROME
     Dosage: UNK
     Dates: start: 20070821, end: 20080501
  5. DROSPIRENONE AND ETHINYL ESTRADIOL [Suspect]
     Indication: PREMENSTRUAL SYNDROME
     Dosage: UNK
     Dates: start: 20080501, end: 20100125
  6. DETROL LA [Concomitant]
     Dosage: 2 MG, DAILY
  7. LORTAB [Concomitant]

REACTIONS (8)
  - ABDOMINAL PAIN [None]
  - CHOLECYSTITIS CHRONIC [None]
  - CHOLELITHIASIS [None]
  - GALLBLADDER CHOLESTEROLOSIS [None]
  - GALLBLADDER INJURY [None]
  - NAUSEA [None]
  - VOMITING [None]
  - INCISION SITE PAIN [None]
